FAERS Safety Report 21245676 (Version 1)
Quarter: 2022Q3

REPORT INFORMATION
  Report Type: Spontaneous
  Country: US (occurrence: None)
  Receive Date: 20220824
  Receipt Date: 20220824
  Transmission Date: 20221026
  Serious: Yes (Hospitalization)
  Sender: FDA-Public Use
  Company Number: US-Emmaus Medical, Inc.-EMM202203-000039

PATIENT
  Age: 25 Year
  Sex: Female
  Weight: 54.43 kg

DRUGS (1)
  1. ENDARI [Suspect]
     Active Substance: GLUTAMINE
     Indication: Product used for unknown indication
     Dosage: 10 G (2 PACKETS BY MOUTH)
     Route: 048
     Dates: start: 20181011

REACTIONS (2)
  - Sickle cell anaemia [Unknown]
  - Asymptomatic COVID-19 [Unknown]
